FAERS Safety Report 6058567-6 (Version None)
Quarter: 2009Q1

REPORT INFORMATION
  Report Type: 
  Country: None (occurrence: None)
  Receive Date: 20090128
  Receipt Date: 20090113
  Transmission Date: 20090719
  Serious: Yes (Other)
  Sender: FDA-Public Use
  Company Number: 2009S1000615

PATIENT
  Age: 77 Year
  Sex: Female
  Weight: 66 kg

DRUGS (19)
  1. ALENDRONIC ACID (ALENDRONIC ACID) (70 MG) [Suspect]
     Indication: OSTEOPOROSIS
     Dosage: 70 MG
     Dates: start: 20080601, end: 20081001
  2. ALENDRONIC ACID (ALENDRONIC ACID) (70 MG) [Suspect]
     Indication: OSTEOPOROSIS
     Dosage: 70 MG
     Dates: start: 20081001
  3. AMOXICILLIN [Concomitant]
  4. CALCIUM CARBONATE [Concomitant]
  5. COLECALCIFEROL [Concomitant]
  6. DOCUSATE SODIUM [Concomitant]
  7. FLUCLOXACILLIN [Concomitant]
  8. FUROSEMIDE [Concomitant]
  9. NICORANDIL [Concomitant]
  10. OMEPRAZOLE [Concomitant]
  11. ORAMORPH SR [Concomitant]
  12. PARACETAMOL [Concomitant]
  13. PREDNISOLONE [Concomitant]
  14. SALBUTAMOL [Concomitant]
  15. SENNA [Concomitant]
  16. SERETIDE [Concomitant]
  17. SIMVASTATIN [Concomitant]
  18. TIOTROPIUM [Concomitant]
  19. TRIMETHOPRIM [Concomitant]

REACTIONS (5)
  - DYSPNOEA [None]
  - GASTRITIS [None]
  - HYPERSENSITIVITY [None]
  - MOBILITY DECREASED [None]
  - OESOPHAGITIS [None]
